FAERS Safety Report 23035621 (Version 1)
Quarter: 2023Q4

REPORT INFORMATION
  Report Type: Spontaneous
  Country: US (occurrence: US)
  Receive Date: 20231006
  Receipt Date: 20231006
  Transmission Date: 20240110
  Serious: Yes (Hospitalization, Other)
  Sender: FDA-Public Use
  Company Number: US-MALLINCKRODT-MNK202304647

PATIENT
  Age: 76 Year
  Sex: Female
  Weight: 54 kg

DRUGS (8)
  1. CORTICOTROPIN [Suspect]
     Active Substance: CORTICOTROPIN
     Indication: Multiple sclerosis
     Route: 030
     Dates: start: 20230111
  2. ALPRAZOLAM [Concomitant]
     Active Substance: ALPRAZOLAM
     Indication: Product used for unknown indication
     Dosage: UNKNOWN
     Dates: start: 20230119
  3. ESCITALOPRAM [Concomitant]
     Active Substance: ESCITALOPRAM OXALATE
     Indication: Product used for unknown indication
     Dosage: UNKNOWN
     Dates: start: 20230725
  4. FLUOXETINE [Concomitant]
     Active Substance: FLUOXETINE HYDROCHLORIDE
     Indication: Product used for unknown indication
     Dosage: UNKNOWN
     Dates: start: 20220303, end: 20230725
  5. LEVETIRACETAM [Concomitant]
     Active Substance: LEVETIRACETAM
     Indication: Product used for unknown indication
     Dosage: UNKNOWN
     Dates: start: 20220620
  6. LISINOPRIL [Concomitant]
     Active Substance: LISINOPRIL
     Indication: Product used for unknown indication
     Dosage: UNKNOWN
     Dates: start: 20230215
  7. VITAMIN D3 [Concomitant]
     Active Substance: CHOLECALCIFEROL
     Indication: Product used for unknown indication
     Dosage: UNKNOWN
     Dates: start: 20220101
  8. OCREVUS [Concomitant]
     Active Substance: OCRELIZUMAB
     Indication: Product used for unknown indication
     Dosage: UNKNOWN
     Dates: start: 20220101

REACTIONS (2)
  - Cardiac pacemaker insertion [Unknown]
  - Seizure [Unknown]

NARRATIVE: CASE EVENT DATE: 20230920
